FAERS Safety Report 7320531-4 (Version None)
Quarter: 2011Q1

REPORT INFORMATION
  Report Type: 
  Country: None (occurrence: None)
  Receive Date: 20110228
  Receipt Date: 20110217
  Transmission Date: 20110831
  Serious: Yes (Other)
  Sender: FDA-Public Use
  Company Number: CA-JNJFOC-20110206511

PATIENT
  Sex: Female

DRUGS (13)
  1. REMICADE [Suspect]
     Indication: CROHN'S DISEASE
     Route: 042
  2. REMICADE [Suspect]
     Indication: IRRITABLE BOWEL SYNDROME
     Route: 042
  3. ADVAIR DISKUS 100/50 [Concomitant]
  4. VITAMIN B-12 [Concomitant]
  5. VITAMIN D [Concomitant]
  6. CALCIUM [Concomitant]
  7. MULTI-VITAMINS [Concomitant]
  8. MULTI-VITAMINS [Concomitant]
  9. ADVAIR DISKUS 100/50 [Concomitant]
  10. REMICADE [Suspect]
     Indication: ANKYLOSING SPONDYLITIS
     Route: 042
  11. CALCIUM [Concomitant]
  12. VITAMIN B-12 [Concomitant]
  13. VITAMIN D [Concomitant]

REACTIONS (2)
  - DRUG EXPOSURE DURING PREGNANCY [None]
  - ABORTION SPONTANEOUS [None]
